FAERS Safety Report 16387045 (Version 2)
Quarter: 2019Q2

REPORT INFORMATION
  Report Type: Spontaneous
  Country: US (occurrence: US)
  Receive Date: 20190604
  Receipt Date: 20190629
  Transmission Date: 20190711
  Serious: No
  Sender: FDA-Public Use
  Company Number: US-HETERO CORPORATE-HET2019US00732

PATIENT
  Age: 72 Year
  Sex: Male
  Weight: 68 kg

DRUGS (3)
  1. SILDENAFIL. [Suspect]
     Active Substance: SILDENAFIL
     Indication: ERECTILE DYSFUNCTION
     Dosage: 100 MG, QD
     Route: 065
     Dates: start: 20190507, end: 20190520
  2. LISINOPRIL. [Concomitant]
     Active Substance: LISINOPRIL
     Indication: PRODUCT USED FOR UNKNOWN INDICATION
     Dosage: 20 MG
     Route: 065
  3. SIMVASTATIN. [Concomitant]
     Active Substance: SIMVASTATIN
     Indication: PRODUCT USED FOR UNKNOWN INDICATION
     Dosage: 20 MG
     Route: 065

REACTIONS (2)
  - Drug ineffective [Unknown]
  - Incorrect dose administered [Unknown]

NARRATIVE: CASE EVENT DATE: 20190507
